FAERS Safety Report 6162674-7 (Version None)
Quarter: 2009Q2

REPORT INFORMATION
  Report Type: 
  Country: None (occurrence: None)
  Receive Date: 20090421
  Receipt Date: 20090119
  Transmission Date: 20091009
  Serious: No
  Sender: FDA-Public Use
  Company Number: US-ASTRAZENECA-2009UW01815

PATIENT
  Age: 67 Year
  Sex: Male

DRUGS (1)
  1. CASODEX [Suspect]
     Dosage: UNKNOWN
     Route: 048

REACTIONS (3)
  - CHILLS [None]
  - HOT FLUSH [None]
  - MOOD SWINGS [None]
